FAERS Safety Report 8275197-6 (Version None)
Quarter: 2012Q2

REPORT INFORMATION
  Report Type: 
  Country: None (occurrence: None)
  Receive Date: 20120411
  Receipt Date: 20120330
  Transmission Date: 20120825
  Serious: Yes (Other)
  Sender: FDA-Public Use
  Company Number: DE-PFIZER INC-2012080645

PATIENT
  Age: 44 Year
  Sex: Female

DRUGS (4)
  1. MORPHINE SULFATE [Suspect]
     Indication: PROCEDURAL PAIN
     Dosage: UNK
     Route: 048
     Dates: start: 20120306, end: 20120314
  2. PANTOPRAZOLE [Concomitant]
  3. IBUPROFEN [Concomitant]
  4. CAFFEINE/PARACETAMOL/PROPYPHENAZONE [Concomitant]

REACTIONS (5)
  - ABDOMINAL PAIN [None]
  - HYPERSENSITIVITY [None]
  - RASH [None]
  - PRURITUS GENERALISED [None]
  - SKIN SWELLING [None]
